FAERS Safety Report 13594062 (Version 2)
Quarter: 2017Q2

REPORT INFORMATION
  Report Type: Spontaneous
  Country: AT (occurrence: AT)
  Receive Date: 20170530
  Receipt Date: 20170620
  Transmission Date: 20170830
  Serious: Yes (Hospitalization, Other)
  Sender: FDA-Public Use
  Company Number: AT-BRISTOL-MYERS SQUIBB COMPANY-BMS-2017-030509

PATIENT
  Age: 67 Year
  Sex: Male

DRUGS (1)
  1. OPDIVO [Suspect]
     Active Substance: NIVOLUMAB
     Indication: RENAL CELL CARCINOMA
     Dosage: UNAV.
     Route: 065
     Dates: start: 201701

REACTIONS (8)
  - Malignant neoplasm progression [Unknown]
  - General physical health deterioration [Unknown]
  - Stridor [Unknown]
  - Tracheal obstruction [Unknown]
  - Cachexia [Unknown]
  - Pneumonitis [Unknown]
  - Dyspnoea [Unknown]
  - Metastases to thyroid [Unknown]

NARRATIVE: CASE EVENT DATE: 201702
